FAERS Safety Report 10838841 (Version 1)
Quarter: 2015Q1

REPORT INFORMATION
  Report Type: Spontaneous
  Country: CH (occurrence: None)
  Receive Date: 20150218
  Receipt Date: 20150218
  Transmission Date: 20150721
  Serious: Yes (Other)
  Sender: FDA-Public Use
  Company Number: 20150076

PATIENT
  Age: 72 Year
  Sex: Male

DRUGS (13)
  1. NEXIUM [Concomitant]
     Active Substance: ESOMEPRAZOLE MAGNESIUM
  2. ROSUVASTATIN [Concomitant]
     Active Substance: ROSUVASTATIN
  3. ALDACTONE [Concomitant]
     Active Substance: SPIRONOLACTONE
  4. LASIX [Concomitant]
     Active Substance: FUROSEMIDE
  5. FERINJECT [Suspect]
     Active Substance: FERRIC CARBOXYMALTOSE
     Indication: PRODUCT USED FOR UNKNOWN INDICATION
     Route: 041
     Dates: start: 20150129
  6. ZOLOFT [Concomitant]
     Active Substance: SERTRALINE HYDROCHLORIDE
  7. ALTACE [Concomitant]
     Active Substance: RAMIPRIL
  8. FLOMAX (TAMSULOSIN) [Concomitant]
  9. SPIRIVA (TIOTROPIUM) [Concomitant]
  10. SYMBICORT (FORMOTEROL FUMARATE, BUDESONIDE, EFORMOTEROLL) [Concomitant]
  11. WARFARIN [Concomitant]
     Active Substance: WARFARIN
  12. SALBUTAMOL [Concomitant]
     Active Substance: ALBUTEROL
  13. GLICLAZIDE [Concomitant]
     Active Substance: GLICLAZIDE

REACTIONS (3)
  - Loss of consciousness [None]
  - Infusion related reaction [None]
  - Respiratory arrest [None]

NARRATIVE: CASE EVENT DATE: 20150129
